FAERS Safety Report 14677705 (Version 1)
Quarter: 2018Q1

REPORT INFORMATION
  Report Type: Spontaneous
  Country: DE (occurrence: DE)
  Receive Date: 20180325
  Receipt Date: 20180325
  Transmission Date: 20180509
  Serious: Yes (Other)
  Sender: FDA-Public Use
  Company Number: DE-SHIRE-DE201811195

PATIENT

DRUGS (1)
  1. INTUNIV [Suspect]
     Active Substance: GUANFACINE HYDROCHLORIDE
     Indication: PRODUCT USED FOR UNKNOWN INDICATION
     Dosage: UNK, 1X/DAY:QD
     Route: 048

REACTIONS (10)
  - Ill-defined disorder [Unknown]
  - Heart rate decreased [Unknown]
  - Fatigue [Unknown]
  - Pallor [Unknown]
  - Infection [Unknown]
  - Headache [Unknown]
  - Circulatory collapse [Unknown]
  - Pyrexia [Unknown]
  - Blood pressure decreased [Unknown]
  - Weight increased [Unknown]
